FAERS Safety Report 10192516 (Version 1)
Quarter: 2014Q2

REPORT INFORMATION
  Report Type: Report from Study
  Country: MX (occurrence: MX)
  Receive Date: 20140523
  Receipt Date: 20140523
  Transmission Date: 20141212
  Serious: Yes (Other)
  Sender: FDA-Public Use
  Company Number: PHHY2014MX062396

PATIENT
  Age: 17 Year
  Sex: Female

DRUGS (2)
  1. CO-DIOVAN [Suspect]
     Indication: HYPERTENSION
     Dosage: 0.5 DF (HALF A TABLET), DAILY
     Route: 048
     Dates: start: 200605
  2. CO-DIOVAN [Suspect]
     Dosage: 0.5 DF (HALF A TABLET), DAILY
     Route: 048
     Dates: start: 201402

REACTIONS (3)
  - Diabetes mellitus [Not Recovered/Not Resolved]
  - Wrong technique in drug usage process [Not Recovered/Not Resolved]
  - Blood pressure increased [Recovered/Resolved]
